FAERS Safety Report 9041196 (Version 3)
Quarter: 2013Q1

REPORT INFORMATION
  Report Type: Spontaneous
  Country: US (occurrence: None)
  Receive Date: 20130114
  Receipt Date: 20130219
  Transmission Date: 20140127
  Serious: Yes (Disabling, Congenital Anomaly)
  Sender: FDA-Public Use
  Company Number: US-TORRENT-00000556

PATIENT
  Age: 68 Year
  Sex: Female
  Weight: 47.63 kg

DRUGS (8)
  1. ZOLPIDEM TARTRATE [Suspect]
     Dosage: 1 TABLET
  2. FISH OIL [Concomitant]
  3. PRILOSEC [Concomitant]
  4. LISINOPRIL [Concomitant]
  5. ASPIRIN [Concomitant]
  6. SIMVASTATIN [Concomitant]
  7. OCUVITE [Concomitant]
  8. CENTRUM SILVER [Concomitant]

REACTIONS (7)
  - Confusional state [None]
  - Hallucination, visual [None]
  - Fall [None]
  - Lower limb fracture [None]
  - Femur fracture [None]
  - Disorientation [None]
  - Ventricular extrasystoles [None]
